FAERS Safety Report 8002932-4 (Version None)
Quarter: 2011Q4

REPORT INFORMATION
  Report Type: 
  Country: None (occurrence: None)
  Receive Date: 20111222
  Receipt Date: 20110324
  Transmission Date: 20120403
  Serious: No
  Sender: FDA-Public Use
  Company Number: US-GLAXOSMITHKLINE-A0920757A

PATIENT
  Sex: Male

DRUGS (5)
  1. AVODART [Suspect]
     Indication: PROSTATOMEGALY
     Dosage: .5MG PER DAY
     Route: 048
  2. PLAVIX [Suspect]
     Indication: CARDIAC DISORDER
     Dosage: 75MG UNKNOWN
     Route: 065
  3. SIMVASTATIN [Suspect]
     Dosage: 20MG UNKNOWN
     Route: 065
  4. TERAZOSIN HCL [Suspect]
     Dosage: 5MG UNKNOWN
     Route: 065
  5. AMIODARONE HYDROCHLORIDE [Suspect]
     Indication: CARDIAC DISORDER
     Dosage: 300MG UNKNOWN
     Route: 065

REACTIONS (5)
  - DRUG INTERACTION [None]
  - BLOOD PRESSURE DECREASED [None]
  - HYPERSENSITIVITY [None]
  - RASH PRURITIC [None]
  - CARDIAC DISORDER [None]
